FAERS Safety Report 19844688 (Version 1)
Quarter: 2021Q3

REPORT INFORMATION
  Report Type: Report from Study
  Country: CA (occurrence: CA)
  Receive Date: 20210916
  Receipt Date: 20210916
  Transmission Date: 20211014
  Serious: Yes (Other)
  Sender: FDA-Public Use
  Company Number: CA-OTSUKA-2021_015960

PATIENT
  Age: 67 Year
  Sex: Female

DRUGS (3)
  1. CEDAZURIDINE AND DECITABINE [Suspect]
     Active Substance: CEDAZURIDINE\DECITABINE
     Dosage: (35 MG OF DECITABINE AND 100 MG OF CEDAZURIDINE) DAY 1?5 IN 28 DAYS CYCLE
     Route: 048
  2. CEDAZURIDINE AND DECITABINE [Suspect]
     Active Substance: CEDAZURIDINE\DECITABINE
     Dosage: (35 MG OF DECITABINE AND 100 MG OF CEDAZURIDINE) DOSE REDUCED
     Route: 048
  3. CEDAZURIDINE AND DECITABINE [Suspect]
     Active Substance: CEDAZURIDINE\DECITABINE
     Indication: CHRONIC MYELOMONOCYTIC LEUKAEMIA
     Dosage: (35 MG OF DECITABINE AND 100 MG OF CEDAZURIDINE)
     Route: 048
     Dates: start: 20201230

REACTIONS (7)
  - Nervous system disorder [Unknown]
  - Product use issue [Unknown]
  - Muscular weakness [Unknown]
  - Asthenia [Unknown]
  - General physical health deterioration [Unknown]
  - Packed red blood cell transfusion [Unknown]
  - Pain in extremity [Unknown]

NARRATIVE: CASE EVENT DATE: 202101
